FAERS Safety Report 15509686 (Version 1)
Quarter: 2018Q4

REPORT INFORMATION
  Report Type: Spontaneous
  Country: US (occurrence: US)
  Receive Date: 20181016
  Receipt Date: 20181016
  Transmission Date: 20190205
  Serious: Yes (Other)
  Sender: FDA-Public Use
  Company Number: US-SA-2018SA283898

PATIENT
  Age: 68 Year
  Sex: Female

DRUGS (11)
  1. ASPIRIN [ACETYLSALICYLIC ACID] [Concomitant]
     Active Substance: ASPIRIN
  2. LANTUS [Concomitant]
     Active Substance: INSULIN GLARGINE
  3. PLAVIX [Concomitant]
     Active Substance: CLOPIDOGREL BISULFATE
  4. PRALUENT [Suspect]
     Active Substance: ALIROCUMAB
     Indication: HYPERLIPIDAEMIA
     Dosage: 75 MG, QOW
     Route: 058
     Dates: start: 20170622
  5. VITAMIN C [ASCORBIC ACID] [Concomitant]
  6. FENOFIBRATE. [Concomitant]
     Active Substance: FENOFIBRATE
  7. MICARDIS [Concomitant]
     Active Substance: TELMISARTAN
  8. NOVOLOG [Concomitant]
     Active Substance: INSULIN ASPART
  9. SELENIUM [Concomitant]
     Active Substance: SELENIUM
  10. AMLODIPINE [Concomitant]
     Active Substance: AMLODIPINE BESYLATE
  11. FISH OIL [Concomitant]
     Active Substance: FISH OIL

REACTIONS (2)
  - Headache [Unknown]
  - Atrial fibrillation [Unknown]
